FAERS Safety Report 5812686-5 (Version None)
Quarter: 2008Q3

REPORT INFORMATION
  Report Type: 
  Country: None (occurrence: None)
  Receive Date: 20080717
  Receipt Date: 20080707
  Transmission Date: 20090109
  Serious: Yes (Death, Life-Threatening)
  Sender: FDA-Public Use
  Company Number: US-WYE-H04846908

PATIENT
  Sex: Female

DRUGS (3)
  1. ZOSYN [Suspect]
     Indication: INFECTION
     Dosage: UNKNOWN
     Route: 042
  2. COLISTIN SULFATE [Suspect]
  3. TYGACIL [Suspect]

REACTIONS (2)
  - MULTI-ORGAN FAILURE [None]
  - PLATELET COUNT DECREASED [None]
